FAERS Safety Report 17253231 (Version 1)
Quarter: 2020Q1

REPORT INFORMATION
  Report Type: Spontaneous
  Country: US (occurrence: US)
  Receive Date: 20200109
  Receipt Date: 20200109
  Transmission Date: 20200409
  Serious: No
  Sender: FDA-Public Use
  Company Number: US-009507513-2001USA001587

PATIENT
  Sex: Female

DRUGS (2)
  1. NEXPLANON [Suspect]
     Active Substance: ETONOGESTREL
     Indication: CONTRACEPTION
     Dosage: IMPLANT, EVERY 3 YEARS
     Route: 059
     Dates: start: 20160921
  2. NEXPLANON [Suspect]
     Active Substance: ETONOGESTREL
     Dosage: ONE IMPLANT
     Route: 059

REACTIONS (4)
  - Menorrhagia [Unknown]
  - Implant site pain [Unknown]
  - Hypomenorrhoea [Unknown]
  - Incorrect product administration duration [Unknown]
